FAERS Safety Report 7558984-9 (Version None)
Quarter: 2011Q2

REPORT INFORMATION
  Report Type: 
  Country: None (occurrence: None)
  Receive Date: 20110525
  Receipt Date: 20110314
  Transmission Date: 20111010
  Serious: No
  Sender: FDA-Public Use
  Company Number: 325313

PATIENT
  Age: 68 Year
  Sex: Female

DRUGS (4)
  1. GLIMEPIRIDE [Concomitant]
  2. METFORMIN HCL [Concomitant]
  3. ACTOS [Concomitant]
  4. VICTOZA [Suspect]
     Indication: TYPE 2 DIABETES MELLITUS
     Dosage: 0.6 MG, QD

REACTIONS (4)
  - DECREASED APPETITE [None]
  - INJECTION SITE HAEMATOMA [None]
  - CONSTIPATION [None]
  - BACK PAIN [None]
